FAERS Safety Report 6994409-X (Version None)
Quarter: 2010Q3

REPORT INFORMATION
  Report Type: 
  Country: None (occurrence: None)
  Receive Date: 20100917
  Receipt Date: 20100908
  Transmission Date: 20110219
  Serious: Yes (Other)
  Sender: FDA-Public Use
  Company Number: IT-JNJFOC-20100903283

PATIENT
  Sex: Male

DRUGS (2)
  1. IMODIUM [Suspect]
     Indication: DIARRHOEA
     Route: 048
  2. TACHIPIRINA [Concomitant]

REACTIONS (2)
  - LIP OEDEMA [None]
  - OROPHARYNGEAL DISCOMFORT [None]
